FAERS Safety Report 13333327 (Version 1)
Quarter: 2017Q1

REPORT INFORMATION
  Report Type: Spontaneous
  Country: US (occurrence: US)
  Receive Date: 20170314
  Receipt Date: 20170314
  Transmission Date: 20170428
  Serious: No
  Sender: FDA-Public Use
  Company Number: US-TEVA-719642ACC

PATIENT
  Sex: Female
  Weight: 50 kg

DRUGS (1)
  1. AMLODIPINE W/VALSARTAN [Suspect]
     Active Substance: AMLODIPINE\VALSARTAN
     Indication: BLOOD PRESSURE MEASUREMENT
     Dosage: 5MG/160 MG

REACTIONS (7)
  - Speech disorder [Unknown]
  - Hypokinesia [Unknown]
  - Product substitution issue [Unknown]
  - Dizziness [Unknown]
  - Influenza [Unknown]
  - Myalgia [Unknown]
  - Dyspnoea [Unknown]
